FAERS Safety Report 10666789 (Version 1)
Quarter: 2014Q4

REPORT INFORMATION
  Report Type: Spontaneous
  Country: US (occurrence: None)
  Receive Date: 20141219
  Receipt Date: 20141219
  Transmission Date: 20150529
  Serious: Yes (Life-Threatening, Disabling, Other)
  Sender: FDA-Public Use
  Company Number: None

PATIENT
  Age: 71 Year
  Sex: Female
  Weight: 77.11 kg

DRUGS (2)
  1. LEVOTHYROXINE [Suspect]
     Active Substance: LEVOTHYROXINE
     Indication: THYROID DISORDER
     Route: 048
     Dates: start: 20141212, end: 20141218
  2. LOSARTAN POTASSIUM. [Suspect]
     Active Substance: LOSARTAN POTASSIUM
     Indication: BLOOD PRESSURE MANAGEMENT
     Route: 048
     Dates: start: 20141113, end: 20141123

REACTIONS (16)
  - Respiratory tract infection [None]
  - White blood cell count abnormal [None]
  - Dyspnoea [None]
  - Hyperhidrosis [None]
  - Insomnia [None]
  - Dizziness [None]
  - Feeling jittery [None]
  - Heart rate increased [None]
  - Cough [None]
  - Pain in extremity [None]
  - Chest pain [None]
  - Headache [None]
  - Nervousness [None]
  - Back pain [None]
  - Muscle spasms [None]
  - Heart rate irregular [None]

NARRATIVE: CASE EVENT DATE: 20141208
